FAERS Safety Report 25630377 (Version 1)
Quarter: 2025Q3

REPORT INFORMATION
  Report Type: Spontaneous
  Country: TR (occurrence: TR)
  Receive Date: 20250801
  Receipt Date: 20250801
  Transmission Date: 20251020
  Serious: Yes (Death, Life-Threatening, Hospitalization)
  Sender: ACCORD
  Company Number: TR-MLMSERVICE-20250718-PI578427-00218-4

PATIENT
  Age: 34 Year
  Sex: Female

DRUGS (12)
  1. METHOTREXATE [Suspect]
     Active Substance: METHOTREXATE
     Indication: B-cell type acute leukaemia
     Dosage: 1000 MG/M2/DAY FOR 2 DAYS, SECOND CYCLE
     Dates: start: 20250106, end: 20250108
  2. ADRIAMYCIN [Suspect]
     Active Substance: DOXORUBICIN HYDROCHLORIDE
     Indication: B-cell type acute leukaemia
     Dosage: FIRST CYCLE
     Dates: start: 202412, end: 202412
  3. DEFLAZACORT [Suspect]
     Active Substance: DEFLAZACORT
     Indication: B-cell type acute leukaemia
     Dosage: FIRST CYCLE
     Dates: start: 202412, end: 202412
  4. CYTARABINE [Suspect]
     Active Substance: CYTARABINE
     Indication: B-cell type acute leukaemia
     Dosage: 2 X3000 MG/M2/DAY FOR 2 DAYS
     Dates: start: 20250106, end: 20250108
  5. PREDNISOLONE [Suspect]
     Active Substance: PREDNISOLONE
     Indication: B-cell type acute leukaemia
     Dosage: 2X25 MG/M2/DAY FOR 3 DAYS
     Dates: start: 20250106, end: 20250109
  6. CYCLOPHOSPHAMIDE [Suspect]
     Active Substance: CYCLOPHOSPHAMIDE
     Indication: B-cell type acute leukaemia
     Dosage: 2X300 MG/M2/DAY FOR 3 DAYS, FIRST CYCLE
     Dates: start: 202412, end: 202412
  7. VINCRISTINE [Suspect]
     Active Substance: VINCRISTINE
     Indication: B-cell type acute leukaemia
     Dosage: FIRST CYCLE
     Dates: start: 202412, end: 202412
  8. FOLIC ACID [Concomitant]
     Active Substance: FOLIC ACID
     Dates: start: 202501
  9. METHOTREXATE [Suspect]
     Active Substance: METHOTREXATE
     Indication: B-cell type acute leukaemia
     Dosage: TOTAL OF 3 DOSES
     Route: 037
  10. METHOTREXATE [Suspect]
     Active Substance: METHOTREXATE
     Indication: B-cell type acute leukaemia
     Route: 037
     Dates: start: 20240114
  11. CYTARABINE [Suspect]
     Active Substance: CYTARABINE
     Indication: B-cell type acute leukaemia
  12. CYTARABINE [Suspect]
     Active Substance: CYTARABINE
     Indication: B-cell type acute leukaemia
     Dates: start: 20240114

REACTIONS (2)
  - Neutropenia [Fatal]
  - Multiple organ dysfunction syndrome [Fatal]

NARRATIVE: CASE EVENT DATE: 20250101
